FAERS Safety Report 25631888 (Version 3)
Quarter: 2025Q3

REPORT INFORMATION
  Report Type: Spontaneous
  Country: EU (occurrence: EU)
  Receive Date: 20250801
  Receipt Date: 20250909
  Transmission Date: 20251020
  Serious: Yes (Hospitalization, Disabling, Other)
  Sender: BAUSCH AND LOMB
  Company Number: EU-002147023-NVSC2024PL083583

PATIENT
  Age: 24 Year
  Sex: Male

DRUGS (39)
  1. DICLOFENAC [Suspect]
     Active Substance: DICLOFENAC
     Indication: Painful ejaculation
     Dosage: SUBRETINAL
     Route: 065
  2. DICLOFENAC [Suspect]
     Active Substance: DICLOFENAC
     Route: 065
  3. DICLOFENAC [Suspect]
     Active Substance: DICLOFENAC
     Route: 054
  4. ALPRAZOLAM [Suspect]
     Active Substance: ALPRAZOLAM
     Indication: Anxiety
     Route: 065
  5. ALPRAZOLAM [Suspect]
     Active Substance: ALPRAZOLAM
     Dosage: DOSE RE-INTRODUCCED
     Route: 065
  6. MAGNESIUM SULFATE [Suspect]
     Active Substance: MAGNESIUM SULFATE
     Indication: Pain
     Route: 065
  7. MAGNESIUM SULFATE [Suspect]
     Active Substance: MAGNESIUM SULFATE
     Indication: Painful ejaculation
     Route: 065
  8. METAMIZOLE [Suspect]
     Active Substance: METAMIZOLE
     Indication: Pain
     Route: 065
  9. METAMIZOLE [Suspect]
     Active Substance: METAMIZOLE
     Indication: Painful ejaculation
     Route: 065
  10. PREGABALIN [Suspect]
     Active Substance: PREGABALIN
     Indication: Painful ejaculation
     Dosage: 25 MILLIGRAM, ONCE A DAY AT NIGHT
     Route: 065
  11. SILDENAFIL [Suspect]
     Active Substance: SILDENAFIL
     Indication: Sexual dysfunction
     Dosage: 50 MG OF SILDENAFIL BEFORE INTERCOURSE
     Route: 065
  12. SILDENAFIL [Suspect]
     Active Substance: SILDENAFIL
     Indication: Neuropathy peripheral
     Dosage: 50 MILLIGRAM, ONCE A DAY (50 MG OF SILDENAFIL BEFORE INTERCOURSE)
     Route: 065
  13. SILDENAFIL [Suspect]
     Active Substance: SILDENAFIL
     Indication: Painful ejaculation
  14. TAMSULOSIN [Suspect]
     Active Substance: TAMSULOSIN
     Indication: Painful ejaculation
     Dosage: 0.4 MG, HS (SUSTAINED RELEASE) TAMSULOSIN SR PER NIGHT
     Route: 065
  15. TAMSULOSIN [Suspect]
     Active Substance: TAMSULOSIN
     Indication: Perineal pain
  16. VALPROIC ACID [Suspect]
     Active Substance: VALPROIC ACID
     Indication: Pain
     Route: 042
  17. VALPROIC ACID [Suspect]
     Active Substance: VALPROIC ACID
     Indication: Painful ejaculation
     Route: 042
  18. LIDOCAINE HYDROCHLORIDE [Suspect]
     Active Substance: LIDOCAINE HYDROCHLORIDE
     Indication: Painful ejaculation
     Route: 065
  19. LIDOCAINE HYDROCHLORIDE [Suspect]
     Active Substance: LIDOCAINE HYDROCHLORIDE
     Indication: Pain
     Route: 065
  20. ESCITALOPRAM [Interacting]
     Active Substance: ESCITALOPRAM OXALATE
     Indication: Depression
     Route: 065
  21. ESCITALOPRAM [Interacting]
     Active Substance: ESCITALOPRAM OXALATE
     Indication: Insomnia
     Route: 065
  22. CIPROFLOXACIN [Interacting]
     Active Substance: CIPROFLOXACIN
     Indication: Painful ejaculation
     Dosage: 1000 MG, ONCE DAILY (2 ? 500 MG)
     Route: 065
  23. CIPROFLOXACIN [Interacting]
     Active Substance: CIPROFLOXACIN
     Route: 065
  24. LEVOFLOXACIN [Interacting]
     Active Substance: LEVOFLOXACIN
     Indication: Painful ejaculation
     Dosage: 1000 MG, ONCE DAILY (2 ? 500 MG)
     Route: 048
  25. LEVOFLOXACIN [Interacting]
     Active Substance: LEVOFLOXACIN
     Indication: Perineal pain
     Route: 065
  26. LEVOFLOXACIN [Interacting]
     Active Substance: LEVOFLOXACIN
     Indication: Depression
     Dosage: 1000 MG, ONCE DAILY (2 ? 500 MG)
     Route: 048
  27. LEVOFLOXACIN [Interacting]
     Active Substance: LEVOFLOXACIN
     Route: 065
  28. MIANSERIN [Interacting]
     Active Substance: MIANSERIN
     Indication: Anxiety
     Dosage: 30 MG, QD
     Route: 065
  29. MIANSERIN [Interacting]
     Active Substance: MIANSERIN
     Route: 065
  30. MELATONIN [Concomitant]
     Active Substance: MELATONIN
     Indication: Depression
  31. MELATONIN [Concomitant]
     Active Substance: MELATONIN
     Indication: Insomnia
     Route: 065
  32. VORTIOXETINE [Concomitant]
     Active Substance: VORTIOXETINE
     Indication: Depression
  33. VORTIOXETINE [Concomitant]
     Active Substance: VORTIOXETINE
     Dosage: 30 MG, QD
  34. VORTIOXETINE [Concomitant]
     Active Substance: VORTIOXETINE
     Route: 065
  35. VORTIOXETINE [Concomitant]
     Active Substance: VORTIOXETINE
     Dosage: 30 MG, QD
  36. VORTIOXETINE [Concomitant]
     Active Substance: VORTIOXETINE
     Dosage: 30 MG, QD
  37. VORTIOXETINE [Concomitant]
     Active Substance: VORTIOXETINE
  38. VORTIOXETINE [Concomitant]
     Active Substance: VORTIOXETINE
  39. VORTIOXETINE [Concomitant]
     Active Substance: VORTIOXETINE

REACTIONS (10)
  - Burning sensation [Not Recovered/Not Resolved]
  - Groin pain [Not Recovered/Not Resolved]
  - Perineal pain [Recovered/Resolved with Sequelae]
  - Drug-disease interaction [Recovered/Resolved]
  - Condition aggravated [Recovered/Resolved]
  - Painful ejaculation [Recovered/Resolved]
  - Pain [Recovered/Resolved]
  - Anxiety [Unknown]
  - Product use in unapproved indication [Unknown]
  - Product prescribing error [Unknown]
